FAERS Safety Report 5257995-6 (Version None)
Quarter: 2007Q1

REPORT INFORMATION
  Report Type: 
  Country: None (occurrence: None)
  Receive Date: 20070307
  Receipt Date: 20061130
  Transmission Date: 20070707
  Serious: No
  Sender: FDA-Public Use
  Company Number: US-GLAXOSMITHKLINE-A0629694A

PATIENT
  Sex: Female

DRUGS (6)
  1. REQUIP [Suspect]
     Indication: RESTLESS LEGS SYNDROME
     Dosage: 2MG FOUR TIMES PER DAY
     Route: 048
  2. ATENOL [Concomitant]
  3. FEMARA [Concomitant]
  4. CELEBREX [Concomitant]
  5. IBUPROFEN [Concomitant]
  6. ASPIRIN [Concomitant]

REACTIONS (2)
  - DRUG INEFFECTIVE [None]
  - PRESCRIBED OVERDOSE [None]
